FAERS Safety Report 6228965-6 (Version None)
Quarter: 2009Q2

REPORT INFORMATION
  Report Type: 
  Country: None (occurrence: None)
  Receive Date: 20090615
  Receipt Date: 20090609
  Transmission Date: 20091009
  Serious: No
  Sender: FDA-Public Use
  Company Number: US-B.I. PHARMACEUTICALS,INC./RIDGEFIELD-2009-BP-05177BP

PATIENT
  Sex: Male
  Weight: 93.2 kg

DRUGS (12)
  1. MICARDIS HCT [Suspect]
     Indication: HYPERTENSION
     Route: 048
     Dates: start: 20070101
  2. LIPITOR [Concomitant]
     Indication: BLOOD CHOLESTEROL INCREASED
     Dosage: 10MG
  3. TOPROL-XL [Concomitant]
     Indication: VASCULAR GRAFT
     Dosage: 50MG
  4. NORVASC [Concomitant]
     Indication: HYPERTENSION
     Dosage: 5MG
  5. SULFASALAZINE [Concomitant]
     Indication: DIVERTICULITIS
  6. FOLIC ACID [Concomitant]
     Indication: DIVERTICULITIS
     Dosage: 1MG
  7. BONIVA [Concomitant]
     Indication: OSTEOPOROSIS
     Dosage: 5MG
  8. FLONASE [Concomitant]
     Indication: SINUSITIS
  9. ASPIRIN [Concomitant]
     Indication: PROPHYLAXIS
     Dosage: 81MG
  10. CALCIUM GLUCONATE [Concomitant]
     Dosage: 1200MG
  11. MULTI-VITAMIN [Concomitant]
  12. NEURONTIN [Concomitant]
     Dosage: 300MG
     Route: 048
     Dates: start: 20081008

REACTIONS (3)
  - APHONIA [None]
  - DYSPHONIA [None]
  - DYSPNOEA [None]
